FAERS Safety Report 6388225-X (Version None)
Quarter: 2009Q4

REPORT INFORMATION
  Report Type: 
  Country: None (occurrence: None)
  Receive Date: 20091001
  Receipt Date: 20091001
  Transmission Date: 20100525
  Serious: Yes (Death)
  Sender: FDA-Public Use
  Company Number: None

PATIENT
  Sex: Male

DRUGS (6)
  1. REVLIMID [Suspect]
     Indication: MULTIPLE MYELOMA
     Dosage: 15MG DAILY ORALLY
     Route: 048
     Dates: start: 20070830, end: 20071228
  2. SERTRALINE HCL [Concomitant]
  3. ZYPREXA [Concomitant]
  4. COMBIVENT [Concomitant]
  5. ALBUTEROL [Concomitant]
  6. ALKERAN [Concomitant]

REACTIONS (1)
  - PNEUMONIA [None]
